FAERS Safety Report 8407379 (Version 8)
Quarter: 2012Q4

REPORT INFORMATION
  Report Type: 
  Country: US (occurrence: US)
  Receive Date: 20120215
  Receipt Date: 20121109
  Transmission Date: 20130627
  Serious: Yes (Other)
  Sender: FDA-Public Use
  Company Number: US-TEVA-322327USA

PATIENT
  Age: 33 Year
  Sex: Female
  Weight: 73.09 kg

DRUGS (1)
  1. CLARAVIS [Suspect]
     Dosage: 80 Milligram Daily;
     Route: 048
     Dates: start: 20110512, end: 2011

REACTIONS (1)
  - Unintended pregnancy [Recovered/Resolved]
